FAERS Safety Report 11322423 (Version 1)
Quarter: 2015Q3

REPORT INFORMATION
  Report Type: Spontaneous
  Country: US (occurrence: None)
  Receive Date: 20150729
  Receipt Date: 20150729
  Transmission Date: 20151125
  Serious: Yes (Other)
  Sender: FDA-Public Use
  Company Number: None

PATIENT
  Age: 4 Year
  Sex: Female
  Weight: 19.05 kg

DRUGS (1)
  1. TIMOPTIC [Suspect]
     Active Substance: TIMOLOL MALEATE
     Indication: GLAUCOMA
     Dosage: THROUGHOUT PREGNANCY

REACTIONS (3)
  - Obsessive-compulsive disorder [None]
  - Maternal drugs affecting foetus [None]
  - Tourette^s disorder [None]

NARRATIVE: CASE EVENT DATE: 20140401
